FAERS Safety Report 7635943-9 (Version None)
Quarter: 2011Q3

REPORT INFORMATION
  Report Type: 
  Country: None (occurrence: None)
  Receive Date: 20110726
  Receipt Date: 20110714
  Transmission Date: 20111222
  Serious: Yes (Hospitalization, Other)
  Sender: FDA-Public Use
  Company Number: JP-ROCHE-763820

PATIENT
  Sex: Female
  Weight: 57 kg

DRUGS (17)
  1. AVASTIN [Suspect]
     Indication: COLON CANCER
     Route: 041
     Dates: start: 20090317, end: 20100831
  2. PROTECADIN [Concomitant]
     Route: 048
     Dates: start: 20100713
  3. FLUOROURACIL [Concomitant]
     Indication: COLON CANCER
     Dosage: DOSAGE IS UNCERTAIN
     Route: 040
     Dates: start: 20090317
  4. DECADRON [Concomitant]
     Dosage: DOSAGE IS UNCERTAIN.
  5. AVASTIN [Suspect]
     Route: 041
     Dates: start: 20100921, end: 20110222
  6. XELODA [Suspect]
     Indication: COLON CANCER METASTATIC
     Dosage: DOSAGE IS UNCERTAIN
     Route: 048
     Dates: start: 20100921, end: 20110222
  7. OXALIPLATIN [Suspect]
     Route: 041
     Dates: start: 20110426
  8. IRINOTECAN HCL [Concomitant]
     Dosage: DOSAGE IS UNCERTAIN
     Route: 041
     Dates: start: 20090317
  9. XELODA [Suspect]
     Dosage: DOSAGE IS UNCERTAIN.
     Route: 048
     Dates: start: 20110426, end: 20110510
  10. LEUCOVORIN CALCIUM [Concomitant]
     Dosage: DOSAGE IS UNCERTAIN.
     Route: 041
     Dates: start: 20090317
  11. IRINOTECAN HCL [Concomitant]
     Dosage: DOSAGE IS UNCERTAIN.
     Route: 041
     Dates: start: 20090317
  12. DIOVAN [Suspect]
     Dosage: DOSAGE IS UNCERTAIN.
     Route: 048
  13. PROTECADIN [Concomitant]
     Dosage: DOSAGE IS UNCERTAIN.
     Route: 048
     Dates: start: 20100713
  14. FLUOROURACIL [Concomitant]
     Dosage: DOSAGE IS UNCERTAIN
     Route: 041
     Dates: start: 20090317
  15. OXALIPLATIN [Concomitant]
     Dosage: DOSAGE IS UNCERTAIN.
     Route: 041
     Dates: start: 20100921, end: 20110222
  16. AVASTIN [Suspect]
     Dosage: DOSAGE IS UNCERTAIN.
     Route: 041
     Dates: start: 20110426
  17. OXALIPLATIN [Suspect]
     Indication: COLON CANCER
     Dosage: DOSAGE IS UNCERTAIN
     Route: 041
     Dates: start: 20100921, end: 20110222

REACTIONS (9)
  - DIARRHOEA [None]
  - ANAEMIA [None]
  - GASTRITIS [None]
  - HYPERTENSION [None]
  - THYROID ATROPHY [None]
  - RENAL FAILURE ACUTE [None]
  - LIVER DISORDER [None]
  - BLOOD ALKALINE PHOSPHATASE INCREASED [None]
  - VOMITING [None]
